FAERS Safety Report 18941241 (Version 5)
Quarter: 2021Q3

REPORT INFORMATION
  Report Type: Spontaneous
  Country: IN (occurrence: IN)
  Receive Date: 20210225
  Receipt Date: 20210804
  Transmission Date: 20211014
  Serious: Yes (Other)
  Sender: FDA-Public Use
  Company Number: IN-PFIZER INC-2021082195

PATIENT
  Age: 72 Year
  Sex: Female

DRUGS (3)
  1. PALBACE [Suspect]
     Active Substance: PALBOCICLIB
     Indication: BREAST CANCER METASTATIC
     Dosage: UNK
     Dates: start: 20201109, end: 20210426
  2. LETROZOLE. [Concomitant]
     Active Substance: LETROZOLE
     Dosage: UNK
     Dates: start: 202011
  3. PALBACE [Suspect]
     Active Substance: PALBOCICLIB
     Dosage: 125 MG, 1X/DAY
     Route: 048
     Dates: start: 20210106, end: 202104

REACTIONS (28)
  - Red blood cell count decreased [Recovering/Resolving]
  - Swelling [Unknown]
  - Ulcer [Unknown]
  - Chest pain [Unknown]
  - White blood cell count decreased [Recovering/Resolving]
  - Platelet count decreased [Unknown]
  - Neutrophil percentage decreased [Recovering/Resolving]
  - Eosinophil percentage decreased [Recovering/Resolving]
  - Blood urea increased [Unknown]
  - Blood creatine increased [Recovering/Resolving]
  - Wound haemorrhage [Unknown]
  - Blood pressure systolic increased [Unknown]
  - Protein total decreased [Unknown]
  - Monocyte percentage increased [Recovering/Resolving]
  - Haematocrit decreased [Recovering/Resolving]
  - Pyrexia [Unknown]
  - Red blood cell nucleated morphology present [Recovered/Resolved]
  - White matter lesion [Unknown]
  - Blood bilirubin decreased [Recovering/Resolving]
  - Haemoglobin decreased [Recovering/Resolving]
  - Body temperature decreased [Unknown]
  - Red cell distribution width increased [Recovering/Resolving]
  - Neutrophil count decreased [Unknown]
  - Haemorrhage [Unknown]
  - Wound secretion [Unknown]
  - Mean cell haemoglobin increased [Recovering/Resolving]
  - Neoplasm progression [Unknown]
  - Weight decreased [Unknown]

NARRATIVE: CASE EVENT DATE: 20210108
